FAERS Safety Report 5491825-2 (Version None)
Quarter: 2007Q4

REPORT INFORMATION
  Report Type: 
  Country: None (occurrence: None)
  Receive Date: 20071022
  Receipt Date: 20071010
  Transmission Date: 20080405
  Serious: Yes (Hospitalization, Other)
  Sender: FDA-Public Use
  Company Number: US-KINGPHARMUSA00001-K200700740

PATIENT

DRUGS (5)
  1. ALTACE [Suspect]
     Indication: HYPERTENSION
     Dosage: 5 MG, QD
     Route: 048
     Dates: start: 20061115, end: 20070115
  2. TENORMIN [Suspect]
     Dosage: 1 U, QD
     Route: 048
     Dates: start: 20061115, end: 20070613
  3. KARDEGIC /00002703/ [Suspect]
     Indication: PROPHYLAXIS
     Dosage: 160 MG, QD
     Route: 048
     Dates: start: 20061115
  4. TAHOR [Suspect]
     Dosage: 80 MG, QD
     Route: 048
     Dates: start: 20061115
  5. PLAVIX [Suspect]
     Indication: PROPHYLAXIS
     Dosage: 75 MG, QD
     Route: 048
     Dates: start: 20061115, end: 20070115

REACTIONS (6)
  - ASTHENIA [None]
  - BRONCHOMALACIA [None]
  - COUGH [None]
  - CRYPTOGENIC ORGANISING PNEUMONIA [None]
  - DYSPNOEA [None]
  - EOSINOPHILIC PNEUMONIA [None]
